FAERS Safety Report 13595950 (Version 1)
Quarter: 2017Q2

REPORT INFORMATION
  Report Type: Spontaneous
  Country: US (occurrence: US)
  Receive Date: 20170530
  Receipt Date: 20170530
  Transmission Date: 20170830
  Serious: Yes (Other)
  Sender: FDA-Public Use
  Company Number: None

PATIENT
  Age: 74 Year
  Sex: Male
  Weight: 71.1 kg

DRUGS (2)
  1. INFUVITE [Suspect]
     Active Substance: VITAMINS
     Indication: DIZZINESS
     Route: 042
     Dates: start: 20170523, end: 20170523
  2. INFUVITE [Suspect]
     Active Substance: VITAMINS
     Indication: DEHYDRATION
     Route: 042
     Dates: start: 20170523, end: 20170523

REACTIONS (3)
  - Infusion related reaction [None]
  - Feeling hot [None]
  - Erythema [None]

NARRATIVE: CASE EVENT DATE: 20170523
